FAERS Safety Report 4675076-7 (Version None)
Quarter: 2005Q2

REPORT INFORMATION
  Report Type: 
  Country: None (occurrence: None)
  Receive Date: 20050526
  Receipt Date: 20041101
  Transmission Date: 20051028
  Serious: Yes (Death, Hospitalization, Other)
  Sender: FDA-Public Use
  Company Number: US-MERCK-0411USA00169

PATIENT
  Age: 39 Year
  Sex: Female
  Weight: 57 kg

DRUGS (3)
  1. VIOXX [Suspect]
     Indication: RHEUMATOID ARTHRITIS
     Route: 048
     Dates: start: 20040901, end: 20040924
  2. VIOXX [Suspect]
     Route: 048
  3. CELEBREX [Concomitant]
     Route: 065
     Dates: start: 20040901

REACTIONS (19)
  - ARTHRALGIA [None]
  - CARDIAC DISORDER [None]
  - CARDIOMEGALY [None]
  - CORONARY ARTERY ATHEROSCLEROSIS [None]
  - CORONARY ARTERY DISEASE [None]
  - CORONARY ARTERY OCCLUSION [None]
  - HEPATOMEGALY [None]
  - HYPERTROPHY [None]
  - INSOMNIA [None]
  - INTRACARDIAC THROMBUS [None]
  - MYOCARDIAL INFARCTION [None]
  - NO THERAPEUTIC RESPONSE [None]
  - OVARIAN CYST [None]
  - PAIN IN EXTREMITY [None]
  - PULMONARY HAEMORRHAGE [None]
  - RENAL CYST [None]
  - SINUSITIS [None]
  - SUBCUTANEOUS ABSCESS [None]
  - UPPER RESPIRATORY TRACT INFECTION [None]
